FAERS Safety Report 17294044 (Version 2)
Quarter: 2020Q1

REPORT INFORMATION
  Report Type: Report from Study
  Country: US (occurrence: US)
  Receive Date: 20200121
  Receipt Date: 20200128
  Transmission Date: 20200409
  Serious: Yes (Hospitalization)
  Sender: FDA-Public Use
  Company Number: US-ROCHE-2519369

PATIENT
  Age: 43 Year
  Sex: Female
  Weight: 81.27 kg

DRUGS (10)
  1. HYDROXYZINE HYDROCHLORIDE. [Concomitant]
     Active Substance: HYDROXYZINE HYDROCHLORIDE
     Route: 048
  2. ADMELOG [Concomitant]
     Active Substance: INSULIN LISPRO
     Route: 058
  3. ATORVASTATIN CALCIUM. [Concomitant]
     Active Substance: ATORVASTATIN CALCIUM
     Route: 048
  4. BUSPIRONE HCL [Concomitant]
     Active Substance: BUSPIRONE HYDROCHLORIDE
     Route: 048
  5. OCREVUS [Suspect]
     Active Substance: OCRELIZUMAB
     Indication: SECONDARY PROGRESSIVE MULTIPLE SCLEROSIS
     Route: 065
     Dates: start: 20191218
  6. DULOXETINE HCL [Concomitant]
     Active Substance: DULOXETINE HYDROCHLORIDE
     Route: 048
  7. FENOFIBRATE. [Concomitant]
     Active Substance: FENOFIBRATE
     Route: 048
  8. OMEPRAZOLE. [Concomitant]
     Active Substance: OMEPRAZOLE
     Route: 048
  9. TRAZODONE HYDROCHLORIDE. [Concomitant]
     Active Substance: TRAZODONE HYDROCHLORIDE
     Route: 048
  10. VITAMIN C [Concomitant]
     Active Substance: ASCORBIC ACID
     Route: 065

REACTIONS (3)
  - Pancreatitis [Not Recovered/Not Resolved]
  - Influenza like illness [Recovering/Resolving]
  - Ketoacidosis [Not Recovered/Not Resolved]

NARRATIVE: CASE EVENT DATE: 202001
